FAERS Safety Report 8270427-9 (Version None)
Quarter: 2012Q2

REPORT INFORMATION
  Report Type: 
  Country: None (occurrence: None)
  Receive Date: 20120410
  Receipt Date: 20120403
  Transmission Date: 20120825
  Serious: Yes (Congenital Anomaly)
  Sender: FDA-Public Use
  Company Number: US-UCBSA-032294

PATIENT
  Age: 24 Hour
  Sex: Female
  Weight: 3.09 kg

DRUGS (4)
  1. MULTI-VITAMINS [Concomitant]
     Indication: PREGNANCY
     Route: 064
  2. LEVOXYL [Concomitant]
     Indication: HYPOTHYROIDISM
     Route: 064
  3. KEPPRA [Suspect]
     Indication: EPILEPSY
     Route: 064
  4. FOLIC ACID [Concomitant]
     Indication: PREGNANCY
     Route: 064

REACTIONS (6)
  - MITRAL VALVE INCOMPETENCE [None]
  - VENTRICULAR SEPTAL DEFECT [None]
  - FOETAL EXPOSURE DURING PREGNANCY [None]
  - JAUNDICE [None]
  - FEEDING DISORDER [None]
  - TRICUSPID VALVE INCOMPETENCE [None]
